FAERS Safety Report 4845402-4 (Version None)
Quarter: 2005Q4

REPORT INFORMATION
  Report Type: 
  Country: None (occurrence: None)
  Receive Date: 20051125
  Receipt Date: 20051110
  Transmission Date: 20060501
  Serious: Yes (Life-Threatening)
  Sender: FDA-Public Use
  Company Number: 2005S1000854

PATIENT
  Age: 2 Day
  Sex: Male

DRUGS (10)
  1. INOMAX [Suspect]
     Indication: LUNG DISORDER
     Dosage: 5 PPM; INH_GAS; INH; CONT INH
     Route: 055
     Dates: start: 20051017, end: 20051025
  2. INOMAX [Suspect]
     Indication: PROPHYLAXIS
     Dosage: 5 PPM; INH_GAS; INH; CONT INH
     Route: 055
     Dates: start: 20051017, end: 20051025
  3. CEFOTAXIME SODIUM [Concomitant]
  4. VANCOMYCIN [Concomitant]
  5. FLUCONAZOLE [Concomitant]
  6. DOPAMINE HCL [Concomitant]
  7. EPINEPHRINE [Concomitant]
  8. INSULIN [Concomitant]
  9. PHYTONADIONE [Concomitant]
  10. SODIUM BICARBONATE IN PLASTIC CONTAINER [Concomitant]

REACTIONS (7)
  - ANAEMIA NEONATAL [None]
  - GENERAL PHYSICAL HEALTH DETERIORATION [None]
  - HYDROCEPHALUS [None]
  - HYPERCAPNIA [None]
  - INTRAVENTRICULAR HAEMORRHAGE NEONATAL [None]
  - LACTIC ACIDOSIS [None]
  - PULMONARY HAEMORRHAGE [None]
